FAERS Safety Report 15175099 (Version 1)
Quarter: 2018Q3

REPORT INFORMATION
  Report Type: Spontaneous
  Country: US (occurrence: US)
  Receive Date: 20180720
  Receipt Date: 20180720
  Transmission Date: 20181010
  Serious: Yes (Death, Hospitalization)
  Sender: FDA-Public Use
  Company Number: US-BIOMARINAP-US-2018-118978

PATIENT
  Sex: Male
  Weight: 14.5 kg

DRUGS (1)
  1. BRINEURA [Suspect]
     Active Substance: CERLIPONASE ALFA
     Indication: NEURONAL CEROID LIPOFUSCINOSIS
     Dosage: 300 MG, QOW
     Route: 020
     Dates: start: 20171108

REACTIONS (8)
  - Autonomic failure syndrome [Fatal]
  - Respiratory distress [Unknown]
  - Oxygen saturation decreased [Unknown]
  - Respiratory rate increased [Unknown]
  - Cardiopulmonary failure [Unknown]
  - Pyrexia [Unknown]
  - Pneumonia [Unknown]
  - Regurgitation [Unknown]
